FAERS Safety Report 14805766 (Version 2)
Quarter: 2018Q4

REPORT INFORMATION
  Report Type: Spontaneous
  Country: FR (occurrence: FR)
  Receive Date: 20180425
  Receipt Date: 20181025
  Transmission Date: 20190204
  Serious: Yes (Other)
  Sender: FDA-Public Use
  Company Number: FR-MERCK KGAA-2046472

PATIENT
  Age: 57 Year
  Sex: Male
  Weight: 66.5 kg

DRUGS (1)
  1. EUTHYROX [Suspect]
     Active Substance: LEVOTHYROXINE SODIUM
     Indication: HORMONE REPLACEMENT THERAPY
     Route: 048
     Dates: start: 20170615

REACTIONS (22)
  - Mental fatigue [Not Recovered/Not Resolved]
  - Vision blurred [Not Recovered/Not Resolved]
  - Insomnia [Not Recovered/Not Resolved]
  - Blood phosphorus decreased [None]
  - Tinnitus [Not Recovered/Not Resolved]
  - Protein total increased [None]
  - Arthralgia [Not Recovered/Not Resolved]
  - Blood creatine increased [None]
  - Myalgia [Not Recovered/Not Resolved]
  - Diplopia [None]
  - Loss of personal independence in daily activities [None]
  - Loss of consciousness [Not Recovered/Not Resolved]
  - Dyspnoea [Not Recovered/Not Resolved]
  - Dizziness [Not Recovered/Not Resolved]
  - Disturbance in attention [None]
  - Asthenia [None]
  - Personal relationship issue [None]
  - Depression [Not Recovered/Not Resolved]
  - Nausea [None]
  - Anxiety [Not Recovered/Not Resolved]
  - Pain in extremity [None]
  - Tongue discomfort [Not Recovered/Not Resolved]

NARRATIVE: CASE EVENT DATE: 20170713
